FAERS Safety Report 10205010 (Version 2)
Quarter: 2014Q3

REPORT INFORMATION
  Report Type: Spontaneous
  Country: US (occurrence: US)
  Receive Date: 20140529
  Receipt Date: 20140905
  Transmission Date: 20150326
  Serious: No
  Sender: FDA-Public Use
  Company Number: US-PFIZER INC-2014147096

PATIENT
  Age: 81 Year
  Sex: Female
  Weight: 63.49 kg

DRUGS (1)
  1. CELEBREX [Suspect]
     Active Substance: CELECOXIB
     Indication: RHEUMATOID ARTHRITIS
     Dosage: 2X/DAY
     Route: 048
     Dates: start: 201403, end: 201405

REACTIONS (4)
  - Musculoskeletal stiffness [Unknown]
  - Hypoaesthesia [Unknown]
  - Neuropathy peripheral [Unknown]
  - Nodule [Unknown]

NARRATIVE: CASE EVENT DATE: 20140525
